FAERS Safety Report 22525118 (Version 3)
Quarter: 2023Q4

REPORT INFORMATION
  Report Type: Spontaneous
  Country: TH (occurrence: TH)
  Receive Date: 20230606
  Receipt Date: 20231006
  Transmission Date: 20240109
  Serious: Yes (Life-Threatening, Other)
  Sender: FDA-Public Use
  Company Number: TH-BRACCO-2023TH02664

PATIENT
  Age: 58 Year
  Sex: Male

DRUGS (2)
  1. IOPAMIDOL [Suspect]
     Active Substance: IOPAMIDOL
     Indication: Computerised tomogram abdomen
     Dosage: 100 ML, ONCE
     Route: 042
     Dates: start: 20230527, end: 20230527
  2. IOPAMIDOL [Suspect]
     Active Substance: IOPAMIDOL
     Indication: Computerised tomogram abdomen
     Dosage: 50 ML, ONCE
     Route: 042
     Dates: start: 20230527, end: 20230527

REACTIONS (4)
  - Respiratory disorder [Recovered/Resolved]
  - Gingival swelling [Recovered/Resolved]
  - Conjunctivitis [Recovered/Resolved]
  - Chills [Recovered/Resolved]

NARRATIVE: CASE EVENT DATE: 20230527
